FAERS Safety Report 17675848 (Version 6)
Quarter: 2020Q2

REPORT INFORMATION
  Report Type: Spontaneous
  Country: US (occurrence: US)
  Receive Date: 20200416
  Receipt Date: 20200616
  Transmission Date: 20200714
  Serious: No
  Sender: FDA-Public Use
  Company Number: US-JNJFOC-20200415675

PATIENT
  Age: 64 Year
  Sex: Female
  Weight: 83.99 kg

DRUGS (2)
  1. TREMFYA [Suspect]
     Active Substance: GUSELKUMAB
     Indication: PSORIASIS
     Route: 058
     Dates: start: 20200101
  2. SYNTHROID [Concomitant]
     Active Substance: LEVOTHYROXINE SODIUM
     Indication: HYPOTHYROIDISM

REACTIONS (4)
  - Device malfunction [Unknown]
  - Accidental exposure to product [Unknown]
  - Product dose omission [Unknown]
  - Needle issue [Unknown]

NARRATIVE: CASE EVENT DATE: 20200412
